FAERS Safety Report 21514649 (Version 1)
Quarter: 2022Q4

REPORT INFORMATION
  Report Type: Spontaneous
  Country: US (occurrence: US)
  Receive Date: 20221027
  Receipt Date: 20221027
  Transmission Date: 20230112
  Serious: Yes (Other)
  Sender: FDA-Public Use
  Company Number: US-GLAXOSMITHKLINE-US2022AMR152844

PATIENT

DRUGS (4)
  1. IMITREX [Suspect]
     Active Substance: SUMATRIPTAN SUCCINATE
     Indication: Migraine
     Dosage: UNK
  2. ORGOVYX [Suspect]
     Active Substance: RELUGOLIX
     Indication: Prostate cancer
     Dosage: 120 MG, QD
     Route: 048
     Dates: start: 20220609
  3. ORGOVYX [Suspect]
     Active Substance: RELUGOLIX
     Dosage: UNK UNK, QD
     Route: 048
     Dates: start: 20220610
  4. NURTEC ODT [Suspect]
     Active Substance: RIMEGEPANT SULFATE
     Indication: Migraine
     Dosage: UNK, QD

REACTIONS (5)
  - Prostate cancer [Unknown]
  - Diarrhoea [Unknown]
  - Constipation [Not Recovered/Not Resolved]
  - Feeling hot [Unknown]
  - Migraine [Not Recovered/Not Resolved]
